FAERS Safety Report 9814268 (Version 1)
Quarter: 2014Q1

REPORT INFORMATION
  Report Type: Spontaneous
  Country: US (occurrence: US)
  Receive Date: 20140113
  Receipt Date: 20140113
  Transmission Date: 20141002
  Serious: No
  Sender: FDA-Public Use
  Company Number: US-ASTELLAS-2014US000053

PATIENT
  Sex: Male

DRUGS (2)
  1. MYRBETRIQ [Suspect]
     Indication: PROSTATE CANCER
     Dosage: 50 MG, UID/QD
     Route: 048
  2. MYRBETRIQ [Suspect]
     Indication: STRESS URINARY INCONTINENCE

REACTIONS (2)
  - Off label use [Unknown]
  - Intentional drug misuse [Unknown]
